FAERS Safety Report 10140973 (Version 2)
Quarter: 2015Q1

REPORT INFORMATION
  Report Type: Other
  Country: US (occurrence: US)
  Receive Date: 20140429
  Receipt Date: 20150210
  Transmission Date: 20150720
  Serious: Yes (Hospitalization, Other)
  Sender: FDA-Public Use
  Company Number: US-GSKPPD-2014GSK042768

PATIENT
  Age: 52 Year
  Sex: Male

DRUGS (8)
  1. ECOTRIN [Concomitant]
     Active Substance: ASPIRIN
  2. DILTIAZEM [Concomitant]
     Active Substance: DILTIAZEM
  3. ISORDIL [Concomitant]
     Active Substance: ISOSORBIDE DINITRATE
  4. AVANDIA [Suspect]
     Active Substance: ROSIGLITAZONE MALEATE
     Indication: DIABETES MELLITUS
     Dosage: DATES OF AVANDIA USE COULD NOT BE CONFIRMED IN RECORDS REVIEWED.
     Route: 048
  5. DIOVAN [Concomitant]
     Active Substance: VALSARTAN
  6. PLAVIX [Concomitant]
     Active Substance: CLOPIDOGREL BISULFATE
  7. METOPROLOL [Concomitant]
     Active Substance: METOPROLOL
  8. LASIX [Concomitant]
     Active Substance: FUROSEMIDE

REACTIONS (1)
  - Myocardial infarction [Recovered/Resolved]

NARRATIVE: CASE EVENT DATE: 200808
